FAERS Safety Report 4353161-7 (Version None)
Quarter: 2004Q2

REPORT INFORMATION
  Report Type: 
  Country: None (occurrence: None)
  Receive Date: 20040503
  Receipt Date: 20040503
  Transmission Date: 20050107
  Serious: Yes (Hospitalization)
  Sender: FDA-Public Use
  Company Number: None

PATIENT
  Age: 73 Year
  Sex: Male

DRUGS (5)
  1. GLYBURIDE [Suspect]
     Indication: DIABETES MELLITUS
     Dosage: 5 MG PO
     Route: 048
  2. ROSIGLITAZONE MALEATE [Suspect]
     Indication: DIABETES MELLITUS
     Dosage: 8 MG PO
     Route: 048
  3. TERAZOSIN HCL [Concomitant]
  4. SIMVASTATIN [Concomitant]
  5. ALLOPURINOL TAB [Concomitant]

REACTIONS (4)
  - BLOOD CREATININE INCREASED [None]
  - FLUID RETENTION [None]
  - HYPOGLYCAEMIA [None]
  - RENAL FAILURE ACUTE [None]
